FAERS Safety Report 13815727 (Version 1)
Quarter: 2017Q3

REPORT INFORMATION
  Report Type: Report from Study
  Country: IT (occurrence: IT)
  Receive Date: 20170731
  Receipt Date: 20170731
  Transmission Date: 20171127
  Serious: Yes (Other)
  Sender: FDA-Public Use
  Company Number: PHHO2014IT012089

PATIENT
  Age: 44 Year
  Sex: Male
  Weight: 65 kg

DRUGS (4)
  1. LEE011 [Suspect]
     Active Substance: RIBOCICLIB
     Indication: NEOPLASM
     Dosage: 400 MG, UNK
     Route: 048
     Dates: start: 20140729
  2. MEK162 [Suspect]
     Active Substance: BINIMETINIB
     Indication: NEOPLASM
     Dosage: 45 MG, UNK
     Route: 048
     Dates: start: 20140729, end: 20140902
  3. LGX818 [Suspect]
     Active Substance: ENCORAFENIB
     Indication: NEOPLASM
     Dosage: 200 MG, UNK
     Route: 048
     Dates: start: 20140729
  4. MEK162 [Suspect]
     Active Substance: BINIMETINIB
     Dosage: 45 MG, UNK
     Route: 048
     Dates: start: 20140908

REACTIONS (2)
  - Macular oedema [Recovered/Resolved]
  - Detachment of retinal pigment epithelium [Recovered/Resolved]

NARRATIVE: CASE EVENT DATE: 20140902
